FAERS Safety Report 25249210 (Version 1)
Quarter: 2025Q2

REPORT INFORMATION
  Report Type: Spontaneous
  Country: GB (occurrence: GB)
  Receive Date: 20250429
  Receipt Date: 20250429
  Transmission Date: 20250717
  Serious: Yes (Life-Threatening)
  Sender: Unknown Manufacturer
  Company Number: None

PATIENT
  Age: 24 Year
  Weight: 85 kg

DRUGS (1)
  1. GLIMEPIRIDE [Suspect]
     Active Substance: GLIMEPIRIDE
     Indication: Product used for unknown indication

REACTIONS (1)
  - Heart rate abnormal [Recovered/Resolved with Sequelae]

NARRATIVE: CASE EVENT DATE: 20150407
